FAERS Safety Report 19696550 (Version 1)
Quarter: 2021Q3

REPORT INFORMATION
  Report Type: Spontaneous
  Country: CN (occurrence: CN)
  Receive Date: 20210813
  Receipt Date: 20210813
  Transmission Date: 20211014
  Serious: Yes (Disabling, Other)
  Sender: FDA-Public Use
  Company Number: CN-SA-2021SA265762

PATIENT
  Age: 82 Year
  Sex: Female
  Weight: 45 kg

DRUGS (6)
  1. CALCIUM DOBESILATE [Concomitant]
     Active Substance: CALCIUM DOBESILATE
     Dosage: 1 DF, QD (1 TABLET/QD/PO)
     Route: 048
  2. ACARBOSE. [Concomitant]
     Active Substance: ACARBOSE
     Indication: HYPERGLYCAEMIA
     Dosage: 2 DF, TID (2 TABLETS/WITH THREE MEALS/PO)
     Route: 048
  3. ROSUVASTATIN. [Concomitant]
     Active Substance: ROSUVASTATIN
     Indication: HYPERLIPIDAEMIA
     Dosage: 1 DF, QD (1 TABLET/QD/PO)
     Route: 048
  4. LANTUS SOLOSTAR [Suspect]
     Active Substance: INSULIN GLARGINE
     Indication: HYPERGLYCAEMIA
     Dosage: 14 IU, QD
     Route: 065
  5. GLURENORM [Concomitant]
     Active Substance: GLIQUIDONE
     Indication: HYPERGLYCAEMIA
     Dosage: 1 DF, QD (1 TABLET/QD/PO)
     Route: 048
  6. PLETAL [Concomitant]
     Active Substance: CILOSTAZOL
     Indication: VASCULAR OCCLUSION
     Dosage: 1 DF, QD (1 TABLET/QD/PO)
     Route: 048

REACTIONS (5)
  - Gait disturbance [Unknown]
  - Renal impairment [Unknown]
  - Diabetic foot [Unknown]
  - Hypoacusis [Unknown]
  - Protein urine present [Unknown]
